FAERS Safety Report 15945599 (Version 1)
Quarter: 2019Q1

REPORT INFORMATION
  Report Type: Report from Study
  Country: DE (occurrence: DE)
  Receive Date: 20190211
  Receipt Date: 20190211
  Transmission Date: 20190417
  Serious: Yes (Hospitalization)
  Sender: FDA-Public Use
  Company Number: DE-ACCORD-105688

PATIENT
  Age: 59 Year
  Sex: Male
  Weight: 82 kg

DRUGS (15)
  1. FELODIPINE. [Concomitant]
     Active Substance: FELODIPINE
     Indication: HYPERTENSION
     Dosage: DAILY DOSE: 5 MG MILLGRAM(S) EVERY DAYS
     Route: 048
  2. METFORMIN [Concomitant]
     Active Substance: METFORMIN HYDROCHLORIDE
     Indication: DIABETES MELLITUS
     Dosage: DAILY DOSE: 1690 MG MILLGRAM(S) EVERY DAYS
     Route: 048
  3. IRINOTECAN [Suspect]
     Active Substance: IRINOTECAN
     Indication: COLORECTAL CANCER
     Dosage: DAILY DOSE: 236 MG MILLGRAM(S) EVERY 2 WEEKS
     Route: 042
     Dates: start: 20150121, end: 20150929
  4. BISOPROLOL [Concomitant]
     Active Substance: BISOPROLOL
     Indication: HYPERTENSION
     Dosage: DAILY DOSE: 7.5 MG MILLGRAM(S) EVERY DAYS
     Route: 048
  5. NOVALGIN (METAMIZOLE SODIUM) [Concomitant]
     Active Substance: METAMIZOLE SODIUM
     Indication: PAIN
     Dosage: AS REQUIRED
     Route: 048
  6. CIPROBAY [Concomitant]
     Active Substance: CIPROFLOXACIN
     Indication: HYPERSENSITIVITY
     Dosage: DAILY DOSE: 1000 MG MILLGRAM(S) EVERY DAYS
     Route: 048
     Dates: start: 20150121, end: 20150131
  7. DEXAMETHASONE. [Concomitant]
     Active Substance: DEXAMETHASONE
     Indication: VOMITING
     Dosage: ON DAY 2 AND 3, AND DAY 9 AND 10, AND DAY 16 AND 17
     Route: 048
  8. AVASTIN [Suspect]
     Active Substance: BEVACIZUMAB
     Indication: COLORECTAL CANCER
     Dosage: DAILY DOSE: 410 MG MILLGRAM(S) EVERY 2 WEEKS
     Route: 042
     Dates: start: 20150121, end: 20150121
  9. HYDROCHLOROTHIAZIDE/LISINOPRIL [Concomitant]
     Indication: HYPERTENSION
     Dosage: 20/12.5MG
     Route: 048
  10. FUROSEMIDE. [Concomitant]
     Active Substance: FUROSEMIDE
     Indication: HYPERTENSION
     Dosage: DAILY DOSE: 40 MG MILLGRAM(S) EVERY DAYS
     Route: 048
     Dates: start: 20150513
  11. TOREM [Concomitant]
     Active Substance: TORSEMIDE
     Indication: HYPERTENSION
     Dosage: DAILY DOSE: 10 MG MILLGRAM(S) EVERY DAYS
     Route: 048
  12. FOLINIC ACID [Concomitant]
     Active Substance: LEUCOVORIN
     Indication: COLORECTAL CANCER
     Dosage: 546-585 MG
     Route: 042
     Dates: start: 20150204, end: 20151110
  13. FLUOROURACIL. [Concomitant]
     Active Substance: FLUOROURACIL
     Indication: COLORECTAL CANCER
     Dosage: 1638-1755 MG
     Route: 041
     Dates: start: 20150204, end: 20151111
  14. GRANISETRON/GRANISETRON HYDROCHLORIDE [Concomitant]
     Indication: VOMITING
     Dosage: ON DAY 1 AND 2, AND DAY 15 AND 16 OF CHEMOTHERAPY
     Route: 042
  15. ALLOPURINOL. [Concomitant]
     Active Substance: ALLOPURINOL
     Indication: HYPERURICAEMIA
     Dosage: DAILY DOSE: 300 MG MILLGRAM(S) EVERY DAYS
     Route: 048

REACTIONS (7)
  - Proteinuria [Not Recovered/Not Resolved]
  - Hypersensitivity [Recovered/Resolved]
  - Diarrhoea [Recovered/Resolved]
  - Vomiting [Recovered/Resolved]
  - Fatigue [Not Recovered/Not Resolved]
  - Dry skin [Not Recovered/Not Resolved]
  - Anaemia [Recovered/Resolved]

NARRATIVE: CASE EVENT DATE: 20150121
